FAERS Safety Report 6338255-9 (Version None)
Quarter: 2009Q3

REPORT INFORMATION
  Report Type: 
  Country: None (occurrence: None)
  Receive Date: 20090902
  Receipt Date: 20090825
  Transmission Date: 20100115
  Serious: Yes (Disabling)
  Sender: FDA-Public Use
  Company Number: DK-BRACCO-000034

PATIENT
  Sex: Female
  Weight: 65 kg

DRUGS (1)
  1. CONTRAST MEDIA [Suspect]
     Indication: NUCLEAR MAGNETIC RESONANCE IMAGING
     Route: 042
     Dates: start: 20060407, end: 20060407

REACTIONS (1)
  - NEPHROGENIC SYSTEMIC FIBROSIS [None]
